FAERS Safety Report 14490831 (Version 1)
Quarter: 2018Q1

REPORT INFORMATION
  Report Type: Spontaneous
  Country: US (occurrence: US)
  Receive Date: 20180206
  Receipt Date: 20180206
  Transmission Date: 20180509
  Serious: Yes (Hospitalization)
  Sender: FDA-Public Use
  Company Number: US-BEH-2018087421

PATIENT
  Sex: Female
  Weight: 62.59 kg

DRUGS (27)
  1. HUMULIN NOS [Concomitant]
     Active Substance: INSULIN HUMAN
  2. HUMALOG [Concomitant]
     Active Substance: INSULIN LISPRO
  3. MIRALAX [Concomitant]
     Active Substance: POLYETHYLENE GLYCOL 3350
  4. ONDANSETRON [Concomitant]
     Active Substance: ONDANSETRON
  5. AMLODIPINE [Concomitant]
     Active Substance: AMLODIPINE BESYLATE
  6. OXYCONTIN [Concomitant]
     Active Substance: OXYCODONE HYDROCHLORIDE
  7. BISACODYL. [Concomitant]
     Active Substance: BISACODYL
  8. CHLORPHENIRAMINE                   /00072501/ [Concomitant]
     Active Substance: CHLORPHENIRAMINE
  9. PROAIR HFA [Concomitant]
     Active Substance: ALBUTEROL SULFATE
  10. ASPIRIN. [Concomitant]
     Active Substance: ASPIRIN
  11. PREDNISONE. [Concomitant]
     Active Substance: PREDNISONE
  12. AQUAPHOR                           /00298701/ [Concomitant]
  13. AFRIN [Concomitant]
     Active Substance: OXYMETAZOLINE
  14. HIZENTRA [Suspect]
     Active Substance: HUMAN IMMUNOGLOBULIN G
     Indication: IMMUNODEFICIENCY COMMON VARIABLE
     Dosage: 8 G, QW
     Route: 058
     Dates: start: 20101027
  15. LOSARTAN. [Concomitant]
     Active Substance: LOSARTAN
  16. ALBUTEROL                          /00139501/ [Concomitant]
     Active Substance: ALBUTEROL
  17. CITRACAL + D                       /01438101/ [Concomitant]
  18. ZETIA [Concomitant]
     Active Substance: EZETIMIBE
  19. CLOTRIMAZOLE. [Concomitant]
     Active Substance: CLOTRIMAZOLE
  20. BUDESONIDE. [Concomitant]
     Active Substance: BUDESONIDE
  21. LUMIGAN [Concomitant]
     Active Substance: BIMATOPROST
  22. HIZENTRA [Suspect]
     Active Substance: HUMAN IMMUNOGLOBULIN G
     Dosage: UNK
     Route: 058
  23. OMEPRAZOLE. [Concomitant]
     Active Substance: OMEPRAZOLE
  24. LORAZEPAM. [Concomitant]
     Active Substance: LORAZEPAM
  25. ZOLPIDEM [Concomitant]
     Active Substance: ZOLPIDEM\ZOLPIDEM TARTRATE
  26. ARTHRITIS PAIN FORMULA [Concomitant]
  27. VICODIN [Concomitant]
     Active Substance: ACETAMINOPHEN\HYDROCODONE BITARTRATE

REACTIONS (1)
  - Dyspnoea [Unknown]
